FAERS Safety Report 16255932 (Version 2)
Quarter: 2019Q3

REPORT INFORMATION
  Report Type: Spontaneous
  Country: US (occurrence: US)
  Receive Date: 20190430
  Receipt Date: 20190903
  Transmission Date: 20191004
  Serious: No
  Sender: FDA-Public Use
  Company Number: US-PFIZER INC-2019179613

PATIENT
  Age: 47 Year
  Sex: Male

DRUGS (1)
  1. EUCRISA [Suspect]
     Active Substance: CRISABOROLE
     Indication: DERMATITIS
     Dosage: 2X/DAY (APPLY TO AFFECTED AREA(S) TWICE A DAY)
     Route: 061

REACTIONS (1)
  - Drug ineffective [Unknown]
